FAERS Safety Report 13310258 (Version 6)
Quarter: 2017Q4

REPORT INFORMATION
  Report Type: Spontaneous
  Country: US (occurrence: US)
  Receive Date: 20170309
  Receipt Date: 20171215
  Transmission Date: 20180320
  Serious: Yes (Other)
  Sender: FDA-Public Use
  Company Number: US-JNJFOC-20170201407

PATIENT
  Sex: Male

DRUGS (2)
  1. RISPERDAL [Suspect]
     Active Substance: RISPERIDONE
     Indication: SCHIZOPHRENIA
     Dosage: 3-4MG
     Route: 048
     Dates: start: 1996, end: 199906
  2. RISPERDAL [Suspect]
     Active Substance: RISPERIDONE
     Indication: SCHIZOPHRENIA
     Route: 048

REACTIONS (6)
  - Gynaecomastia [Unknown]
  - Sexual dysfunction [Unknown]
  - Obesity [Recovering/Resolving]
  - Corneal dystrophy [Unknown]
  - Inappropriate schedule of drug administration [Unknown]
  - Insomnia [Unknown]

NARRATIVE: CASE EVENT DATE: 1996
